FAERS Safety Report 10049960 (Version 1)
Quarter: 2014Q1

REPORT INFORMATION
  Report Type: Spontaneous
  Country: US (occurrence: None)
  Receive Date: 20140331
  Receipt Date: 20140331
  Transmission Date: 20141002
  Serious: Yes (Other)
  Sender: FDA-Public Use
  Company Number: None

PATIENT
  Age: 15 Year
  Sex: Female
  Weight: 103 kg

DRUGS (4)
  1. HUMIRA PEN [Suspect]
     Indication: PSORIATIC ARTHROPATHY
     Route: 058
  2. PROZAC [Concomitant]
  3. DICLOFENAC [Concomitant]
  4. OMEPRAZOLE [Concomitant]

REACTIONS (4)
  - Psoriasis [None]
  - Depression [None]
  - Anxiety [None]
  - Intentional self-injury [None]
